FAERS Safety Report 6075396-8 (Version None)
Quarter: 2009Q1

REPORT INFORMATION
  Report Type: 
  Country: None (occurrence: None)
  Receive Date: 20090209
  Receipt Date: 20090130
  Transmission Date: 20090719
  Serious: Yes (Death)
  Sender: FDA-Public Use
  Company Number: SPV1-2009-00155

PATIENT
  Age: 69 Year
  Sex: Female

DRUGS (1)
  1. FOSRENOL [Suspect]
     Dosage: 1000 MG, WITH MEALS, ORAL; 500 MG, WITH SNACKS, ORAL
     Route: 048

REACTIONS (1)
  - DEATH [None]
